FAERS Safety Report 4547897-2 (Version None)
Quarter: 2005Q1

REPORT INFORMATION
  Report Type: 
  Country: None (occurrence: None)
  Receive Date: 20050110
  Receipt Date: 20041229
  Transmission Date: 20050727
  Serious: Yes (Other)
  Sender: FDA-Public Use
  Company Number: US-JNJFOC-20040706367

PATIENT
  Sex: Female
  Weight: 68.04 kg

DRUGS (12)
  1. REMICADE [Suspect]
     Indication: CROHN'S DISEASE
     Route: 042
  2. 6-MP [Concomitant]
     Indication: CROHN'S DISEASE
     Route: 049
  3. MESALAMINE [Concomitant]
     Indication: CROHN'S DISEASE
     Dosage: EXPOSURE TIME IN GESTATIONAL WEEKS-ALL
     Route: 049
  4. EFFEXOR [Concomitant]
     Indication: DEPRESSION
     Route: 049
  5. M.V.I. [Concomitant]
     Route: 049
  6. M.V.I. [Concomitant]
     Route: 049
  7. M.V.I. [Concomitant]
     Route: 049
  8. M.V.I. [Concomitant]
     Route: 049
  9. M.V.I. [Concomitant]
     Route: 049
  10. M.V.I. [Concomitant]
     Route: 049
  11. M.V.I. [Concomitant]
     Route: 049
  12. M.V.I. [Concomitant]
     Indication: PREGNANCY
     Route: 049

REACTIONS (3)
  - DRUG EXPOSURE DURING PREGNANCY [None]
  - PRE-ECLAMPSIA [None]
  - PREMATURE LABOUR [None]
